FAERS Safety Report 8530311 (Version 2)
Quarter: 2013Q1

REPORT INFORMATION
  Report Type: Spontaneous
  Country: US (occurrence: None)
  Receive Date: 20120402
  Receipt Date: 20130312
  Transmission Date: 20140127
  Serious: Yes (Other)
  Sender: FDA-Public Use
  Company Number: 2012031722

PATIENT
  Sex: Female
  Weight: 56.7 kg

DRUGS (20)
  1. HIZENTRA [Suspect]
     Indication: IMMUNODEFICIENCY COMMON VARIABLE
     Dosage: (12 G 1X/WEEK, 4 GM (20 ML) ON 4 SITES OVER 1-2 HOURS SUBCUTANEOUS)
     Route: 058
     Dates: start: 20110204
  2. MARINOL [Concomitant]
  3. RANITIDINE HYDROCHLORIDE [Concomitant]
  4. OMEPRAZOLE [Concomitant]
  5. SENSIPAR [Concomitant]
  6. RENVELA (SEVELAMER) [Concomitant]
  7. SULFASALAZINE [Concomitant]
  8. PERIACTIN [Concomitant]
  9. PREDNISONE [Concomitant]
  10. OXYCONTIN [Concomitant]
  11. PERCOCET [Concomitant]
  12. PHOSLO [Concomitant]
  13. ACETAMINOPHEN [Concomitant]
  14. IBUPROFEN (IBUPROFEN) [Concomitant]
  15. DIPHENHYDRAMINE (DIPHENHYDRAMINE) [Concomitant]
  16. LIDOCAINE/PRILOCAINE (EMLA/00675501/) [Concomitant]
  17. EPI-PEN (EPINEPHRINE HYDROCHLORIDE) [Concomitant]
  18. MUCINEX (GUAIFENESIN) [Concomitant]
  19. DUONEB (COMBIVENT/01261001/) [Concomitant]
  20. RENAGEL (SEVELAMER HYDROCHLORIDE) [Concomitant]

REACTIONS (4)
  - Malaise [None]
  - Pneumonia [None]
  - Infusion site vesicles [None]
  - Infusion site scab [None]
